FAERS Safety Report 7500968-0 (Version None)
Quarter: 2011Q2

REPORT INFORMATION
  Report Type: 
  Country: None (occurrence: None)
  Receive Date: 20110524
  Receipt Date: 20110516
  Transmission Date: 20111010
  Serious: Yes (Death, Congenital Anomaly, Other)
  Sender: FDA-Public Use
  Company Number: US-PFIZER INC-2011105842

PATIENT
  Sex: Male
  Weight: 4 kg

DRUGS (8)
  1. PRENATAL VITAMINS [Concomitant]
     Dosage: ONE TABLET, ONCE DAILY
     Route: 064
     Dates: start: 20090322, end: 20090328
  2. AMBIEN [Concomitant]
     Indication: SLEEP DISORDER
     Dosage: 5 MG, WHEN NEEDED AT BEDTIME
     Route: 064
     Dates: start: 20090319, end: 20090325
  3. EFFEXOR XR [Suspect]
     Indication: DEPRESSION
     Dosage: 150 MG, 1X/DAY
     Route: 064
     Dates: start: 20080811
  4. COLACE [Concomitant]
     Indication: CONSTIPATION
     Dosage: 100 MG, 2X/DAY
     Route: 064
     Dates: start: 20090320, end: 20090321
  5. KETOROLAC TROMETHAMINE [Concomitant]
     Dosage: UNK,
     Route: 064
  6. MAGNESIUM [Concomitant]
     Indication: CONSTIPATION
     Dosage: 10 ML, EVERY 6 HOURS WHEN NEEDED
     Route: 064
     Dates: start: 20090321, end: 20090325
  7. POLYETHYLENE GLYCOL [Concomitant]
     Dosage: 17 G, EVERY DAY FOR ONE WEEK
     Route: 064
     Dates: start: 20090321, end: 20090324
  8. ACETAMINOPHEN [Concomitant]
     Indication: PAIN
     Dosage: 650 MG, EVERY FOUR HOURS WHEN NEEDED
     Route: 064

REACTIONS (13)
  - PULMONARY ARTERY STENOSIS [None]
  - NEONATAL TACHYCARDIA [None]
  - MACROSOMIA [None]
  - HYPOGLYCAEMIA [None]
  - RESPIRATORY FAILURE [None]
  - PERICARDIAL EFFUSION [None]
  - CONTUSION [None]
  - DRUG EXPOSURE DURING PREGNANCY [None]
  - TACHYPNOEA [None]
  - CARDIAC HYPERTROPHY [None]
  - CARDIOMEGALY [None]
  - PULMONARY ARTERY ATRESIA [None]
  - DILATATION ATRIAL [None]
